FAERS Safety Report 8814651 (Version 19)
Quarter: 2015Q4

REPORT INFORMATION
  Report Type: Report from Study
  Country: CA (occurrence: CA)
  Receive Date: 20120928
  Receipt Date: 20151028
  Transmission Date: 20160305
  Serious: Yes (Hospitalization)
  Sender: FDA-Public Use
  Company Number: CA-INCYTE CORPORATION-2012IN001453

PATIENT
  Age: 74 Year
  Sex: Male

DRUGS (10)
  1. JAKAFI [Suspect]
     Active Substance: RUXOLITINIB
     Dosage: 15 MG, BID
     Route: 048
  2. JAKAFI [Suspect]
     Active Substance: RUXOLITINIB
     Dosage: 20 MG, BID
     Route: 048
  3. ALLOPURINOL. [Concomitant]
     Active Substance: ALLOPURINOL
     Dosage: UNK
  4. LEVOTHYROXINE SODIUM. [Concomitant]
     Active Substance: LEVOTHYROXINE SODIUM
     Dosage: UNK
  5. JAKAFI [Suspect]
     Active Substance: RUXOLITINIB
     Indication: MYELOFIBROSIS
     Dosage: 10 MG, BID
     Route: 048
     Dates: start: 20120814
  6. JAKAFI [Suspect]
     Active Substance: RUXOLITINIB
     Dosage: 15 MG, BID
     Route: 048
     Dates: end: 20121114
  7. ULORIC [Concomitant]
     Active Substance: FEBUXOSTAT
     Dosage: UNK
  8. HYDROXYUREA. [Concomitant]
     Active Substance: HYDROXYUREA
     Route: 065
  9. SALBUTAMOL [Concomitant]
     Active Substance: ALBUTEROL
     Dosage: UNK
     Route: 065
  10. JAKAFI [Suspect]
     Active Substance: RUXOLITINIB
     Dosage: 5 MG, BID
     Route: 048
     Dates: start: 20121214

REACTIONS (32)
  - Dyspnoea [Unknown]
  - Hypotension [Unknown]
  - Peripheral swelling [Unknown]
  - Skin disorder [Unknown]
  - White blood cell count increased [Unknown]
  - Abdominal discomfort [Unknown]
  - Splenomegaly [Recovering/Resolving]
  - Fatigue [Unknown]
  - Night sweats [Unknown]
  - Pain in extremity [Recovering/Resolving]
  - Epistaxis [Unknown]
  - Oedema peripheral [Unknown]
  - Amnesia [Unknown]
  - Somnolence [Unknown]
  - Blood iron decreased [Unknown]
  - Constipation [Unknown]
  - Gout [Recovering/Resolving]
  - Hyperhidrosis [Unknown]
  - Weight decreased [Unknown]
  - Haemorrhage [Unknown]
  - Endocarditis staphylococcal [Unknown]
  - Fluid retention [Unknown]
  - Malaise [Unknown]
  - Infection [Unknown]
  - Pulmonary oedema [Unknown]
  - Daydreaming [Unknown]
  - Immune system disorder [Unknown]
  - Decreased appetite [Unknown]
  - Secretion discharge [Unknown]
  - Muscle spasms [Not Recovered/Not Resolved]
  - Feeling abnormal [Unknown]
  - Renal disorder [Unknown]

NARRATIVE: CASE EVENT DATE: 20130320
